FAERS Safety Report 21622014 (Version 1)
Quarter: 2022Q4

REPORT INFORMATION
  Report Type: Spontaneous
  Country: US (occurrence: US)
  Receive Date: 20221121
  Receipt Date: 20221121
  Transmission Date: 20230113
  Serious: No
  Sender: FDA-Public Use
  Company Number: US-GE HEALTHCARE-2022CSU006713

PATIENT
  Age: 61 Year
  Sex: Female
  Weight: 72.562 kg

DRUGS (3)
  1. OMNIPAQUE [Suspect]
     Active Substance: IOHEXOL
     Indication: Computerised tomogram abdomen
     Dosage: 30 ML (1 ML/SEC), SINGLE
     Route: 042
     Dates: start: 20220915, end: 20220915
  2. OMNIPAQUE [Suspect]
     Active Substance: IOHEXOL
     Indication: Abdominal pain
  3. OMNIPAQUE [Suspect]
     Active Substance: IOHEXOL
     Indication: Diarrhoea

REACTIONS (1)
  - Extravasation [Recovered/Resolved]

NARRATIVE: CASE EVENT DATE: 20220915
